FAERS Safety Report 4914362-X (Version None)
Quarter: 2006Q1

REPORT INFORMATION
  Report Type: 
  Country: None (occurrence: None)
  Receive Date: 20060213
  Receipt Date: 20060201
  Transmission Date: 20060701
  Serious: No
  Sender: FDA-Public Use
  Company Number: 2006US000200

PATIENT
  Age: 88 Year
  Sex: Female

DRUGS (3)
  1. PROTOPIC [Suspect]
     Indication: PRURITUS GENERALISED
     Dosage: TOPICAL
     Route: 061
     Dates: start: 20020801, end: 20020101
  2. ELIDEL [Suspect]
     Dosage: TOPICAL
     Route: 061
     Dates: start: 20030101, end: 20060101
  3. CORTISONE ACETATE [Concomitant]

REACTIONS (2)
  - ABASIA [None]
  - LYMPHOMA [None]
